FAERS Safety Report 9026113 (Version 1)
Quarter: 2012Q4

REPORT INFORMATION
  Report Type: Spontaneous
  Country: US (occurrence: None)
  Receive Date: 20121207
  Receipt Date: 20121207
  Transmission Date: 20130627
  Serious: Yes (Death)
  Sender: FDA-Public Use
  Company Number: UTC-026287

PATIENT
  Age: 47 Year
  Sex: Female
  Weight: 53.09 kg

DRUGS (2)
  1. REMODULIN [Suspect]
     Dosage: 2.88 ug/kg (0.002 ug/kg,1 in 1 min),Subcutaneous
     Dates: start: 20120716
  2. ADCIRCA (TADALAFIL) [Concomitant]

REACTIONS (1)
  - Death [None]
